FAERS Safety Report 5240383-6 (Version None)
Quarter: 2007Q1

REPORT INFORMATION
  Report Type: 
  Country: None (occurrence: None)
  Receive Date: 20070219
  Receipt Date: 20070209
  Transmission Date: 20070707
  Serious: Yes (Hospitalization, Other)
  Sender: FDA-Public Use
  Company Number: 2007UW00407

PATIENT
  Age: 28611 Day
  Sex: Female

DRUGS (10)
  1. NOLVADEX [Suspect]
     Indication: BREAST CANCER
     Route: 048
     Dates: start: 20041008, end: 20061213
  2. NOLVADEX [Suspect]
     Route: 048
     Dates: start: 20061214
  3. ZD1839 CODE NOT BROKEN [Suspect]
     Indication: BREAST CANCER
     Route: 048
     Dates: start: 20041008, end: 20061213
  4. ZD1839 CODE NOT BROKEN [Suspect]
     Route: 048
     Dates: start: 20061214
  5. UREMOL [Concomitant]
     Indication: DRY SKIN
     Dates: start: 20060105, end: 20061201
  6. MARCAINE [Concomitant]
     Indication: ANAESTHESIA
     Dates: start: 20061213, end: 20061213
  7. NAPROSYN [Concomitant]
     Indication: PAIN
     Dates: start: 20061213
  8. TYLENOL [Concomitant]
     Indication: PAIN
     Dates: start: 20061213
  9. INSULIN [Concomitant]
     Indication: DIABETES MELLITUS
  10. SENNA [Concomitant]
     Indication: CONSTIPATION

REACTIONS (1)
  - VAGINAL HAEMORRHAGE [None]
